FAERS Safety Report 4598045-4 (Version None)
Quarter: 2005Q2

REPORT INFORMATION
  Report Type: 
  Country: None (occurrence: None)
  Receive Date: 20050207
  Receipt Date: 20040624
  Transmission Date: 20051028
  Serious: Yes (Hospitalization)
  Sender: FDA-Public Use
  Company Number: MEDI-0002069

PATIENT
  Age: 68 Year
  Sex: Female
  Weight: 48.0813 kg

DRUGS (7)
  1. ETHYOL [Suspect]
     Indication: CHEMOTHERAPY
     Dosage: 500 MG, 5 IN 1 WK, SUBCUTANEOUS
     Route: 058
     Dates: start: 20040614, end: 20040621
  2. ETHYOL [Suspect]
     Indication: RADIOTHERAPY
     Dosage: 500 MG, 5 IN 1 WK, SUBCUTANEOUS
     Route: 058
     Dates: start: 20040614, end: 20040621
  3. CISPLATIN [Concomitant]
  4. FLUOROURACIL [Concomitant]
  5. RADIATION THERAPY [Concomitant]
  6. MULTI-VITAMIN [Concomitant]
  7. ZOFRAN [Concomitant]

REACTIONS (7)
  - BLOOD CREATININE INCREASED [None]
  - BLOOD UREA INCREASED [None]
  - HYPOTENSION [None]
  - INCOHERENT [None]
  - PYREXIA [None]
  - RASH PAPULAR [None]
  - URTICARIA [None]
